FAERS Safety Report 10917734 (Version 1)
Quarter: 2015Q1

REPORT INFORMATION
  Report Type: Spontaneous
  Country: US (occurrence: None)
  Receive Date: 20150311
  Receipt Date: 20150311
  Transmission Date: 20150721
  Serious: No
  Sender: FDA-Public Use
  Company Number: 1210513-2015-00073

PATIENT
  Sex: Male

DRUGS (1)
  1. DR. SHEFFIELD HEMORRHOID OINTMENT [Suspect]
     Active Substance: PRAMOXINE HYDROCHLORIDE\ZINC OXIDE
     Indication: ANORECTAL DISORDER
     Route: 061

REACTIONS (3)
  - Application site erythema [None]
  - Application site burn [None]
  - Application site irritation [None]

NARRATIVE: CASE EVENT DATE: 20120601
